FAERS Safety Report 22161356 (Version 1)
Quarter: 2023Q1

REPORT INFORMATION
  Report Type: Spontaneous
  Country: DK (occurrence: DK)
  Receive Date: 20230331
  Receipt Date: 20230331
  Transmission Date: 20230417
  Serious: Yes (Hospitalization)
  Sender: FDA-Public Use
  Company Number: DK-SEBELA IRELAND LIMITED-2023SEB00021

PATIENT
  Age: 57 Year
  Sex: Male

DRUGS (1)
  1. AZATHIOPRINE [Suspect]
     Active Substance: AZATHIOPRINE

REACTIONS (4)
  - Drug reaction with eosinophilia and systemic symptoms [Unknown]
  - Circulatory collapse [Unknown]
  - Acute generalised exanthematous pustulosis [Unknown]
  - Renal failure [Unknown]
